FAERS Safety Report 9194089 (Version 1)
Quarter: 2013Q1

REPORT INFORMATION
  Report Type: Spontaneous
  Country: BR (occurrence: BR)
  Receive Date: 20130327
  Receipt Date: 20130327
  Transmission Date: 20140127
  Serious: Yes (Hospitalization, Other)
  Sender: FDA-Public Use
  Company Number: BR-ELI_LILLY_AND_COMPANY-BR201303006857

PATIENT
  Age: 7 Year
  Sex: Female
  Weight: 27 kg

DRUGS (4)
  1. HUMALOG LISPRO [Suspect]
     Indication: DIABETES MELLITUS
     Dosage: UNK UNK, PRN
     Route: 058
     Dates: start: 2008
  2. LOSARTAN [Concomitant]
     Indication: RENAL DISORDER
     Dosage: 25 MG, EACH MORNING
     Route: 065
  3. LANTUS [Concomitant]
     Dosage: 18 IU, UNKNOWN
     Route: 065
  4. LANTUS [Concomitant]
     Dosage: 22 IU, UNKNOWN
     Route: 065

REACTIONS (3)
  - Blood glucose increased [Recovering/Resolving]
  - Renal injury [Not Recovered/Not Resolved]
  - Feeling abnormal [Unknown]
